FAERS Safety Report 5760000-6 (Version None)
Quarter: 2008Q2

REPORT INFORMATION
  Report Type: 
  Country: None (occurrence: None)
  Receive Date: 20080605
  Receipt Date: 20080602
  Transmission Date: 20081010
  Serious: Yes (Life-Threatening)
  Sender: FDA-Public Use
  Company Number: FR-ASTRAZENECA-2008CG00851

PATIENT
  Age: 75 Year
  Sex: Female

DRUGS (1)
  1. NAROPEINE [Suspect]
     Route: 013

REACTIONS (3)
  - HYPOTENSION [None]
  - INCORRECT ROUTE OF DRUG ADMINISTRATION [None]
  - WRONG DRUG ADMINISTERED [None]
